FAERS Safety Report 18410508 (Version 2)
Quarter: 2020Q4

REPORT INFORMATION
  Report Type: Spontaneous
  Country: US (occurrence: US)
  Receive Date: 20201021
  Receipt Date: 20201029
  Transmission Date: 20210114
  Serious: No
  Sender: FDA-Public Use
  Company Number: US-PFIZER INC-2020402850

PATIENT
  Age: 72 Year
  Sex: Male
  Weight: 85.28 kg

DRUGS (2)
  1. ALPRAZOLAM. [Suspect]
     Active Substance: ALPRAZOLAM
     Indication: ANXIETY
     Dosage: 1 MG, TWICE A DAY (ONE TABLET BY MOUTH, TWICE A DAY AND ONE HALF TABLET AS NEEDED)
     Route: 048
     Dates: start: 20201014
  2. ALPRAZOLAM. [Suspect]
     Active Substance: ALPRAZOLAM
     Indication: INSOMNIA

REACTIONS (6)
  - Nausea [Unknown]
  - Drug ineffective [Unknown]
  - Intentional product misuse [Unknown]
  - Product colour issue [Unknown]
  - Headache [Unknown]
  - Poor quality product administered [Unknown]

NARRATIVE: CASE EVENT DATE: 20201014
